FAERS Safety Report 5008389-X (Version None)
Quarter: 2006Q2

REPORT INFORMATION
  Report Type: 
  Country: None (occurrence: None)
  Receive Date: 20060523
  Receipt Date: 20060515
  Transmission Date: 20061013
  Serious: Yes (Other)
  Sender: FDA-Public Use
  Company Number: CH-JNJFOC-20060503241

PATIENT
  Age: 16 Year
  Sex: Female
  Weight: 67 kg

DRUGS (3)
  1. CONCERTA [Suspect]
     Indication: DISTURBANCE IN ATTENTION
     Route: 048
  2. CO-DAFALGAN [Interacting]
     Route: 048
  3. CO-DAFALGAN [Interacting]
     Route: 048

REACTIONS (3)
  - DRUG INTERACTION [None]
  - HALLUCINATION [None]
  - VISUAL DISTURBANCE [None]
